FAERS Safety Report 9753202 (Version 3)
Quarter: 2015Q3

REPORT INFORMATION
  Report Type: Spontaneous
  Country: US (occurrence: US)
  Receive Date: 20131213
  Receipt Date: 20150805
  Transmission Date: 20151125
  Serious: No
  Sender: FDA-Public Use
  Company Number: US-GILEAD-2010-0026905

PATIENT
  Age: 59 Year
  Sex: Female
  Weight: 79.38 kg

DRUGS (10)
  1. LETAIRIS [Suspect]
     Active Substance: AMBRISENTAN
     Indication: PULMONARY ARTERIAL HYPERTENSION
     Route: 048
     Dates: start: 20091126
  2. LASIX [Concomitant]
     Active Substance: FUROSEMIDE
  3. COZAAR [Concomitant]
     Active Substance: LOSARTAN POTASSIUM
  4. ALDACTONE [Concomitant]
     Active Substance: SPIRONOLACTONE
  5. VITAMIN D [Concomitant]
     Active Substance: CHOLECALCIFEROL
  6. VITAMIN B [Concomitant]
     Active Substance: VITAMIN B
  7. TRIPLE OMEGA 3-6-9 [Concomitant]
  8. NEXIUM [Concomitant]
     Active Substance: ESOMEPRAZOLE MAGNESIUM
  9. LANTUS [Concomitant]
     Active Substance: INSULIN GLARGINE
  10. HUMALOG [Concomitant]
     Active Substance: INSULIN LISPRO

REACTIONS (2)
  - Headache [Unknown]
  - Abdominal pain upper [Unknown]
